FAERS Safety Report 5593092-8 (Version None)
Quarter: 2008Q1

REPORT INFORMATION
  Report Type: 
  Country: None (occurrence: None)
  Receive Date: 20080114
  Receipt Date: 20080114
  Transmission Date: 20080703
  Serious: Yes (Other)
  Sender: FDA-Public Use
  Company Number: None

PATIENT
  Age: 47 Year
  Sex: Female
  Weight: 51.7101 kg

DRUGS (2)
  1. BUPROPION HCL [Suspect]
     Indication: DEPRESSION
     Dosage: 100MG 2X/DAY PO
     Route: 048
     Dates: start: 20070801, end: 20070901
  2. BUPROPION HCL [Suspect]
     Dosage: 300MG 1X/DAY PO
     Route: 048
     Dates: start: 20070901, end: 20071201

REACTIONS (2)
  - DEPRESSION [None]
  - THERAPEUTIC RESPONSE UNEXPECTED WITH DRUG SUBSTITUTION [None]
